FAERS Safety Report 9880403 (Version 1)
Quarter: 2014Q1

REPORT INFORMATION
  Report Type: Spontaneous
  Country: US (occurrence: None)
  Receive Date: 20140206
  Receipt Date: 20140206
  Transmission Date: 20141002
  Serious: Yes (Life-Threatening, Disabling, Other)
  Sender: FDA-Public Use
  Company Number: None

PATIENT
  Age: 66 Year
  Sex: Female
  Weight: 58.97 kg

DRUGS (4)
  1. ABILIFY [Suspect]
     Indication: BIPOLAR DISORDER
     Route: 048
  2. ABILIFY [Suspect]
     Indication: SCHIZOPHRENIA
     Route: 048
  3. ABILIFY [Suspect]
     Indication: BIPOLAR DISORDER
     Route: 048
  4. ABILIFY [Suspect]
     Indication: STRESS
     Route: 048

REACTIONS (5)
  - Hypertension [None]
  - Memory impairment [None]
  - Fall [None]
  - Mental impairment [None]
  - Disturbance in attention [None]
